FAERS Safety Report 5787008-9 (Version None)
Quarter: 2008Q2

REPORT INFORMATION
  Report Type: 
  Country: None (occurrence: None)
  Receive Date: 20080625
  Receipt Date: 20080618
  Transmission Date: 20081010
  Serious: Yes (Hospitalization)
  Sender: FDA-Public Use
  Company Number: NL-JNJFOC-20080604643

PATIENT
  Sex: Female
  Weight: 79 kg

DRUGS (4)
  1. GALANTAMINE HYDROBROMIDE [Suspect]
     Indication: DEMENTIA ALZHEIMER'S TYPE
  2. ATENOLOL [Concomitant]
  3. MOVICOLON [Concomitant]
  4. TAMOXIFEN CITRATE [Concomitant]

REACTIONS (2)
  - MALLORY-WEISS SYNDROME [None]
  - VOMITING [None]
